FAERS Safety Report 8891678 (Version 1)
Quarter: 2012Q4

REPORT INFORMATION
  Report Type: 
  Country: US (occurrence: US)
  Receive Date: 20121107
  Receipt Date: 20121107
  Transmission Date: 20130627
  Serious: No
  Sender: FDA-Public Use
  Company Number: US-AMGEN-USASP2011058504

PATIENT
  Age: 60 Year
  Sex: Female

DRUGS (2)
  1. ENBREL [Suspect]
     Indication: RHEUMATOID ARTHRITIS
     Dosage: 50 mg, qwk
     Dates: start: 20040515
  2. LEFLUNOMIDE [Concomitant]
     Dosage: 2 mg, qd
     Dates: start: 201104

REACTIONS (2)
  - Rheumatoid nodule [Not Recovered/Not Resolved]
  - Injection site bruising [Not Recovered/Not Resolved]
